FAERS Safety Report 5795158-6 (Version None)
Quarter: 2008Q2

REPORT INFORMATION
  Report Type: 
  Country: None (occurrence: None)
  Receive Date: 20080630
  Receipt Date: 20080521
  Transmission Date: 20081010
  Serious: No
  Sender: FDA-Public Use
  Company Number: US-BRISTOL-MYERS SQUIBB COMPANY-14199103

PATIENT
  Age: 65 Year
  Sex: Female
  Weight: 84 kg

DRUGS (12)
  1. ORENCIA [Suspect]
     Dates: start: 20080101
  2. ZOCOR [Concomitant]
  3. VERAPAMIL [Concomitant]
  4. LISINOPRIL [Concomitant]
  5. FOLIC ACID [Concomitant]
  6. METHOTREXATE [Concomitant]
  7. DETROL [Concomitant]
  8. PRILOSEC [Concomitant]
  9. ASPIRIN [Concomitant]
  10. VITAMIN E [Concomitant]
  11. FISH OIL [Concomitant]
  12. OS-CAL [Concomitant]

REACTIONS (3)
  - CHILLS [None]
  - HEADACHE [None]
  - PYREXIA [None]
